FAERS Safety Report 8567738-6 (Version None)
Quarter: 2012Q3

REPORT INFORMATION
  Report Type: 
  Country: None (occurrence: None)
  Receive Date: 20120803
  Receipt Date: 20120622
  Transmission Date: 20120928
  Serious: Yes (Life-Threatening, Hospitalization)
  Sender: FDA-Public Use
  Company Number: JP-009507513-2012SP022962

PATIENT

DRUGS (8)
  1. REBETOL [Suspect]
     Indication: PRODUCT USED FOR UNKNOWN INDICATION
     Dosage: 600 MG, BID
     Route: 048
     Dates: start: 20120106, end: 20120425
  2. LOXOPROFEN [Concomitant]
     Indication: HEADACHE
     Dosage: TAKE AS NEED FOR PAIN
     Route: 048
     Dates: start: 20120101, end: 20120401
  3. ALLEGRA [Concomitant]
     Indication: PRURITUS
     Dosage: 60 MG, UNK
     Route: 048
     Dates: start: 20120308, end: 20120315
  4. PEG-INTRON [Suspect]
     Dosage: 80 MICROGRAM, QW
     Route: 058
     Dates: start: 20120106, end: 20120419
  5. ALLEGRA [Concomitant]
  6. TEPRENONE [Concomitant]
     Dosage: TAKE AS NEED FOR PAIN
     Route: 048
  7. PEG-INTRON [Suspect]
     Indication: PRODUCT USED FOR UNKNOWN INDICATION
     Dosage: 80 ?G, QW
     Route: 058
     Dates: start: 20120106, end: 20120419
  8. TEPRENONE [Concomitant]
     Indication: HEADACHE
     Dates: start: 20120101, end: 20120401

REACTIONS (1)
  - SUBARACHNOID HAEMORRHAGE [None]
